FAERS Safety Report 21622723 (Version 1)
Quarter: 2022Q4

REPORT INFORMATION
  Report Type: Spontaneous
  Country: US (occurrence: US)
  Receive Date: 20221121
  Receipt Date: 20221121
  Transmission Date: 20230113
  Serious: Yes (Other)
  Sender: FDA-Public Use
  Company Number: US-ELI_LILLY_AND_COMPANY-US202211006028

PATIENT
  Age: 67 Year
  Sex: Male

DRUGS (1)
  1. EMGALITY [Suspect]
     Active Substance: GALCANEZUMAB-GNLM
     Indication: Migraine
     Dosage: 240 MG, SINGLE (LOADING DOSE)
     Route: 065
     Dates: start: 20221103, end: 20221104

REACTIONS (4)
  - Syncope [Unknown]
  - Hypotension [Unknown]
  - Migraine [Unknown]
  - Diarrhoea [Unknown]

NARRATIVE: CASE EVENT DATE: 20221104
